FAERS Safety Report 4370996-5 (Version None)
Quarter: 2004Q2

REPORT INFORMATION
  Report Type: 
  Country: None (occurrence: None)
  Receive Date: 20040526
  Receipt Date: 20040517
  Transmission Date: 20050107
  Serious: Yes (Other)
  Sender: FDA-Public Use
  Company Number: B0324377A

PATIENT
  Age: 60 Year
  Sex: Female

DRUGS (3)
  1. NICODERM CQ [Suspect]
     Indication: EX-SMOKER
     Dosage: 21 MG / PER DAY / TRANSDERMAL
     Route: 062
     Dates: start: 20040217, end: 20040222
  2. VALPROATE SODIUM [Concomitant]
  3. PHENYTOIN [Concomitant]

REACTIONS (2)
  - FEELING ABNORMAL [None]
  - PETIT MAL EPILEPSY [None]
